FAERS Safety Report 5299495-3 (Version None)
Quarter: 2007Q2

REPORT INFORMATION
  Report Type: 
  Country: None (occurrence: None)
  Receive Date: 20070417
  Receipt Date: 20070405
  Transmission Date: 20071010
  Serious: Yes (Hospitalization)
  Sender: FDA-Public Use
  Company Number: RU-BRISTOL-MYERS SQUIBB COMPANY-13739800

PATIENT
  Age: 63 Year
  Sex: Female

DRUGS (8)
  1. SAXAGLIPTIN [Suspect]
     Indication: DIABETES MELLITUS NON-INSULIN-DEPENDENT
     Route: 048
     Dates: start: 20070327
  2. METFORMIN HCL [Suspect]
     Dates: start: 20070327
  3. BLINDED: PLACEBO [Suspect]
     Indication: DIABETES MELLITUS NON-INSULIN-DEPENDENT
     Route: 048
     Dates: start: 20070327
  4. ENALAPRIL MALEATE AND HYDROCHLOROTHIAZIDE [Concomitant]
     Dosage: ENALAPRIL-HYPOTHIAZIDE 20/12.5MG
     Dates: start: 20061219
  5. DIGOXIN [Concomitant]
     Dates: start: 20030601
  6. VINPOCETINE [Concomitant]
     Dates: start: 20061219
  7. SOTALOL HYDROCHLORIDE [Concomitant]
     Dates: start: 20070311
  8. ASPIRIN [Concomitant]
     Dates: start: 20060601

REACTIONS (1)
  - PANCREATITIS ACUTE [None]
